FAERS Safety Report 15371636 (Version 2)
Quarter: 2018Q3

REPORT INFORMATION
  Report Type: Spontaneous
  Country: PL (occurrence: PL)
  Receive Date: 20180911
  Receipt Date: 20180918
  Transmission Date: 20181010
  Serious: Yes (Hospitalization, Other)
  Sender: FDA-Public Use
  Company Number: PHHY2018PL095227

PATIENT
  Age: 43 Year
  Sex: Male

DRUGS (3)
  1. MYCOPHENOLATE MOFETIL. [Concomitant]
     Active Substance: MYCOPHENOLATE MOFETIL
     Indication: LIVER TRANSPLANT
     Dosage: UNK
     Route: 065
  2. TACROLIMUS. [Suspect]
     Active Substance: TACROLIMUS
     Indication: LIVER TRANSPLANT
     Dosage: UNK
     Route: 065
  3. PREDNISONE. [Concomitant]
     Active Substance: PREDNISONE
     Indication: LIVER TRANSPLANT
     Dosage: UNK
     Route: 065

REACTIONS (5)
  - Facial bones fracture [Unknown]
  - Thrombocytopenia [Unknown]
  - Miller Fisher syndrome [Recovering/Resolving]
  - Upper respiratory tract infection [Unknown]
  - Diabetes mellitus [Unknown]
